FAERS Safety Report 10396824 (Version 1)
Quarter: 2014Q1

REPORT INFORMATION
  Report Type: Spontaneous
  Country: US (occurrence: None)
  Receive Date: 20130815
  Receipt Date: 20130815
  Transmission Date: 20141002
  Serious: Yes (Life-Threatening, Hospitalization, Other)
  Sender: FDA-Public Use
  Company Number: ADR-2013-00440

PATIENT
  Age: 37 Year
  Sex: Female

DRUGS (2)
  1. BACLOFEN INTRATHECAL [Suspect]
     Indication: MUSCLE SPASTICITY
  2. MORPHINE [Concomitant]

REACTIONS (5)
  - Toxicity to various agents [None]
  - Respiratory failure [None]
  - Overdose [None]
  - Sedation [None]
  - Incorrect drug administration rate [None]
